FAERS Safety Report 13929062 (Version 1)
Quarter: 2017Q3

REPORT INFORMATION
  Report Type: Spontaneous
  Country: US (occurrence: None)
  Receive Date: 20170901
  Receipt Date: 20170901
  Transmission Date: 20171127
  Serious: Yes (Hospitalization)
  Sender: FDA-Public Use
  Company Number: None

PATIENT
  Age: 61 Year
  Sex: Male
  Weight: 123.38 kg

DRUGS (1)
  1. CYCLOBENZAPRINE. [Suspect]
     Active Substance: CYCLOBENZAPRINE
     Indication: PAIN
     Route: 048
     Dates: start: 20170724, end: 20170809

REACTIONS (6)
  - Rash pruritic [None]
  - Rash [None]
  - Arthritis bacterial [None]
  - Nightmare [None]
  - Hypersensitivity vasculitis [None]
  - Arthralgia [None]

NARRATIVE: CASE EVENT DATE: 20170809
